FAERS Safety Report 14905424 (Version 1)
Quarter: 2018Q2

REPORT INFORMATION
  Report Type: Spontaneous
  Country: US (occurrence: US)
  Receive Date: 20180517
  Receipt Date: 20180517
  Transmission Date: 20180711
  Serious: No
  Sender: FDA-Public Use
  Company Number: US-SA-2017SA254045

PATIENT
  Age: 61 Year
  Sex: Female

DRUGS (3)
  1. LANTUS SOLOSTAR [Suspect]
     Active Substance: INSULIN GLARGINE
     Dosage: DOSE:15 UNIT(S)
     Route: 051
  2. LANTUS SOLOSTAR [Suspect]
     Active Substance: INSULIN GLARGINE
     Dosage: DOSE:45 UNIT(S)
     Route: 051
  3. SOLOSTAR [Suspect]
     Active Substance: DEVICE

REACTIONS (3)
  - Device issue [Unknown]
  - Injection site bruising [Unknown]
  - Blood glucose increased [Unknown]
